FAERS Safety Report 7482726-9 (Version None)
Quarter: 2011Q2

REPORT INFORMATION
  Report Type: 
  Country: None (occurrence: None)
  Receive Date: 20110516
  Receipt Date: 20110506
  Transmission Date: 20111010
  Serious: Yes (Hospitalization, Other)
  Sender: FDA-Public Use
  Company Number: US-ASTRAZENECA-2010SE53456

PATIENT
  Age: 44 Year
  Sex: Male
  Weight: 64.4 kg

DRUGS (10)
  1. SEROQUEL [Suspect]
     Route: 048
  2. SEROQUEL [Suspect]
     Indication: BIPOLAR DISORDER
     Route: 048
     Dates: start: 20091101
  3. LEVOTHYROXINE SODIUM [Concomitant]
  4. BENAZEPRIL HYDROCHLORIDE [Concomitant]
  5. LITHIUM CARBONATE [Concomitant]
  6. SEROQUEL [Suspect]
     Indication: ANXIETY
     Route: 048
     Dates: start: 20091101
  7. CARBAMAZEPINE [Concomitant]
  8. METFORMIN HCL [Concomitant]
  9. PAXIL [Concomitant]
  10. SEROQUEL [Suspect]
     Route: 048

REACTIONS (7)
  - RADIOTHERAPY [None]
  - CHEMOTHERAPY [None]
  - COLON CANCER [None]
  - COLON OPERATION [None]
  - NEOPLASM MALIGNANT [None]
  - DIABETES MELLITUS [None]
  - HYPERTENSION [None]
